FAERS Safety Report 18699738 (Version 6)
Quarter: 2022Q1

REPORT INFORMATION
  Report Type: Spontaneous
  Country: GB (occurrence: GB)
  Receive Date: 20210105
  Receipt Date: 20220302
  Transmission Date: 20220423
  Serious: Yes (Hospitalization, Other)
  Sender: FDA-Public Use
  Company Number: GB-JNJFOC-20210103043

PATIENT
  Age: 87 Year
  Sex: Female

DRUGS (18)
  1. SIMPONI [Suspect]
     Active Substance: GOLIMUMAB
     Indication: Rheumatoid arthritis
     Dosage: STRENGTH: 50MG/0.5ML
     Route: 058
     Dates: start: 20190719, end: 20210528
  2. ABATACEPT [Concomitant]
     Active Substance: ABATACEPT
  3. AMLODIPINE [Concomitant]
     Active Substance: AMLODIPINE BESYLATE
  4. ASPIRIN [Concomitant]
     Active Substance: ASPIRIN
  5. CALOGEN EXTRA [Concomitant]
     Route: 065
  6. POLYETHYLENE GLYCOLS [Concomitant]
     Active Substance: POLYETHYLENE GLYCOLS
     Dosage: TWO SACHETS TO BE TAKEN TWICE A DAY
     Route: 065
  7. ACETAMINOPHEN [Concomitant]
     Active Substance: ACETAMINOPHEN
     Route: 065
  8. MELATONIN [Concomitant]
     Active Substance: MELATONIN
     Dosage: MODIFIED RELEASE TABLETS, 2 MG ONE AT NIGHT
  9. SULFASALAZINE [Concomitant]
     Active Substance: SULFASALAZINE
     Route: 065
  10. CLINITAS [Concomitant]
     Dosage: AS PRESCRIBED BY OPHTHALMOLOGY
  11. HYDROXOCOBALAMIN [Concomitant]
     Active Substance: HYDROXOCOBALAMIN
     Route: 065
  12. PEPTAC [RANITIDINE HYDROCHLORIDE] [Concomitant]
     Dosage: 2 X 5ML TEASPOONFUL AS?REQUIRED UP TO FOUR TIMES A DAY
  13. SENNA LEAF [Concomitant]
     Active Substance: SENNA LEAF
     Dosage: TWO 5ML SPOONFULL TO BE TAKEN AT NIGHT
     Route: 048
  14. CHLORPHENIRAMINE MALEATE [Concomitant]
     Active Substance: CHLORPHENIRAMINE MALEATE
     Route: 065
  15. DOCUSATE [Concomitant]
     Active Substance: DOCUSATE
     Route: 065
  16. FLUOROMETHOLONE [Concomitant]
     Active Substance: FLUOROMETHOLONE
     Route: 065
  17. RAMIPRIL [Concomitant]
     Active Substance: RAMIPRIL
     Route: 048
  18. RAMIPRIL [Concomitant]
     Active Substance: RAMIPRIL
     Route: 048

REACTIONS (4)
  - Hip arthroplasty [Unknown]
  - Cardiac failure [Recovered/Resolved]
  - Fall [Unknown]
  - Head injury [Unknown]

NARRATIVE: CASE EVENT DATE: 20210501
